FAERS Safety Report 11241831 (Version 3)
Quarter: 2015Q4

REPORT INFORMATION
  Report Type: Spontaneous
  Country: RS (occurrence: RS)
  Receive Date: 20150706
  Receipt Date: 20151120
  Transmission Date: 20160304
  Serious: Yes (Life-Threatening)
  Sender: FDA-Public Use
  Company Number: RS-B.I. PHARMACEUTICALS,INC./RIDGEFIELD-2015-BI-35867RS

PATIENT
  Age: 67 Year
  Sex: Female

DRUGS (4)
  1. LERCANIL [Concomitant]
     Indication: PRODUCT USED FOR UNKNOWN INDICATION
     Route: 065
  2. MICARDIS [Suspect]
     Active Substance: TELMISARTAN
     Indication: HYPERTENSION
     Dosage: 40 MG
     Route: 048
     Dates: start: 20130630
  3. MICARDIS [Suspect]
     Active Substance: TELMISARTAN
     Dosage: 80 MG
     Route: 048
     Dates: start: 20150630, end: 20150630
  4. MONIZOL [Concomitant]
     Indication: PRODUCT USED FOR UNKNOWN INDICATION
     Route: 065

REACTIONS (7)
  - Incorrect dose administered [Recovered/Resolved]
  - Product quality issue [Unknown]
  - Headache [Recovered/Resolved]
  - Hyperhidrosis [Recovered/Resolved]
  - Anxiety [Recovered/Resolved]
  - Tachycardia [Recovered/Resolved]
  - Dizziness [Recovered/Resolved]

NARRATIVE: CASE EVENT DATE: 20150630
